FAERS Safety Report 11720961 (Version 1)
Quarter: 2015Q4

REPORT INFORMATION
  Report Type: Spontaneous
  Country: US (occurrence: US)
  Receive Date: 20151110
  Receipt Date: 20151110
  Transmission Date: 20160304
  Serious: No
  Sender: FDA-Public Use
  Company Number: US-SA-2015SA151958

PATIENT
  Age: 68 Year
  Sex: Male

DRUGS (2)
  1. PRALUENT [Suspect]
     Active Substance: ALIROCUMAB
     Route: 065
     Dates: start: 20150922
  2. ALIROCUMAB PREFILLED PEN [Concomitant]
     Dates: start: 20150922

REACTIONS (4)
  - Flushing [Unknown]
  - Erythema [Unknown]
  - Rash [Recovering/Resolving]
  - Eye pruritus [Unknown]

NARRATIVE: CASE EVENT DATE: 20150924
